FAERS Safety Report 21531637 (Version 1)
Quarter: 2022Q4

REPORT INFORMATION
  Report Type: Spontaneous
  Country: US (occurrence: None)
  Receive Date: 20221028
  Receipt Date: 20221028
  Transmission Date: 20230112
  Serious: Yes (Hospitalization)
  Sender: FDA-Public Use
  Company Number: None

PATIENT
  Age: 55 Year
  Sex: Male

DRUGS (1)
  1. LISINOPRIL [Suspect]
     Active Substance: LISINOPRIL
     Dosage: 40 MG EVERY DAY PO
     Route: 048
     Dates: start: 20090216, end: 20220406

REACTIONS (1)
  - Angioedema [None]

NARRATIVE: CASE EVENT DATE: 20220407
